FAERS Safety Report 16815102 (Version 1)
Quarter: 2019Q3

REPORT INFORMATION
  Report Type: Spontaneous
  Country: AT (occurrence: AT)
  Receive Date: 20190917
  Receipt Date: 20190917
  Transmission Date: 20191005
  Serious: Yes (Death, Life-Threatening, Other)
  Sender: FDA-Public Use
  Company Number: AT-TEVA-2019-AT-1106790

PATIENT
  Age: 32 Year
  Sex: Male

DRUGS (7)
  1. ALCOHOL. [Suspect]
     Active Substance: ALCOHOL
     Route: 065
  2. PRAXITEN [Suspect]
     Active Substance: OXAZEPAM
     Route: 065
  3. SUBSTITOL RETARD KAPSELN [Suspect]
     Active Substance: MORPHINE SULFATE
     Indication: DRUG ABUSE
     Dosage: 1 CAPSL, SINGLE
     Route: 042
  4. NORDAZEPAM [Suspect]
     Active Substance: NORDAZEPAM
     Route: 065
  5. CODIPRONT [Suspect]
     Active Substance: CODEINE\PHENYLTOLOXAMINE
     Route: 065
  6. ROHYPNOL [Suspect]
     Active Substance: FLUNITRAZEPAM
     Route: 065
  7. MIRTAZAPINE. [Suspect]
     Active Substance: MIRTAZAPINE
     Route: 065

REACTIONS (4)
  - Drug abuse [Fatal]
  - Overdose [Fatal]
  - Respiratory paralysis [Fatal]
  - Brain oedema [Fatal]

NARRATIVE: CASE EVENT DATE: 20071026
